FAERS Safety Report 6687476-4 (Version None)
Quarter: 2010Q2

REPORT INFORMATION
  Report Type: 
  Country: None (occurrence: None)
  Receive Date: 20100416
  Receipt Date: 20100416
  Transmission Date: 20101027
  Serious: Yes (Hospitalization)
  Sender: FDA-Public Use
  Company Number: None

PATIENT
  Age: 78 Year
  Sex: Male
  Weight: 123 kg

DRUGS (2)
  1. METHOTREXATE [Suspect]
     Indication: RHEUMATOID ARTHRITIS
     Dosage: 15 MG QWEEK PO
     Route: 048
     Dates: start: 20091223, end: 20100413
  2. ALLOPURINOL [Suspect]
     Indication: GOUT
     Dosage: 100 MG EVERY DAY PO
     Route: 048
     Dates: start: 20091221, end: 20100413

REACTIONS (2)
  - PANCYTOPENIA [None]
  - RENAL FAILURE ACUTE [None]
